FAERS Safety Report 9646032 (Version 5)
Quarter: 2014Q1

REPORT INFORMATION
  Report Type: Spontaneous
  Country: US (occurrence: US)
  Receive Date: 20131025
  Receipt Date: 20140127
  Transmission Date: 20141002
  Serious: Yes (Hospitalization, Other)
  Sender: FDA-Public Use
  Company Number: US-PFIZER INC-2013304614

PATIENT
  Age: 50 Year
  Sex: Female
  Weight: 106 kg

DRUGS (22)
  1. CHANTIX [Suspect]
     Indication: SMOKING CESSATION THERAPY
     Dosage: 0.5 MG X 11 + 1 MG X 42,UNK
     Route: 048
     Dates: start: 20120314
  2. QVAR [Concomitant]
     Dosage: 80 MCG/ACT AEROSOL SOLN 2 (TWO), 2X/DAY
     Route: 055
     Dates: start: 20120308
  3. METFORMIN HYDROCHLORIDE [Concomitant]
     Dosage: 1000 MG, 2X/DAY
     Route: 048
     Dates: start: 20120301
  4. GABAPENTIN [Concomitant]
     Dosage: 800 MG, 2X/DAY
     Route: 048
     Dates: start: 20120110
  5. CYMBALTA [Concomitant]
     Dosage: 30 MG, DAILY
     Route: 048
     Dates: start: 20111221
  6. DIOVAN [Concomitant]
     Dosage: 80 MG, DAILY
     Route: 048
  7. FLEXERIL [Concomitant]
     Dosage: 10 MG, UP TO 3X/DAY
     Route: 048
     Dates: start: 20111220
  8. ATROVENT HFA [Concomitant]
     Dosage: 17 MCG/ACT AEROSOL SOLN 2 (TWO), 4X/DAY
     Route: 055
     Dates: start: 20111123
  9. SINGULAIR [Concomitant]
     Dosage: 10 MG, DAILY
     Route: 048
     Dates: start: 20111202
  10. NOVOLOG FLEXPEN [Concomitant]
     Dosage: 100 UNIT/ML SOLUTION 5, 3X/DAY (WITH MEALS)
     Route: 058
     Dates: start: 20111207
  11. LEVOTHYROXINE SODIUM [Concomitant]
     Dosage: 125 UG, DAILY
     Route: 048
  12. CRESTOR [Concomitant]
     Dosage: 20 MG, 1X/DAY (QD)
     Route: 048
     Dates: start: 20111018
  13. LANTUS [Concomitant]
     Dosage: 100 UNIT/ML SOLUTION SUBCUTANEOUS 20 U, 2X/DAY
     Route: 058
     Dates: start: 20111025
  14. TRAZODONE HYDROCHLORIDE [Concomitant]
     Dosage: 150 MG, QHS (1X/DAY)
     Route: 048
     Dates: start: 20111026
  15. SEREVENT DISKUS [Concomitant]
     Dosage: 50 MCG/DOSE AERO POW BR ACT 1, 2X/DAY
     Route: 055
     Dates: start: 20110303
  16. DUONEB [Concomitant]
     Dosage: 0.5-2.5 (3) MG/3 ML SOLUTION 1 INHALATION, 4X/DAY
     Route: 055
     Dates: start: 20120314
  17. FLONASE [Concomitant]
     Dosage: 50 MCG/ACT SUSPENSION, UNK
     Route: 045
  18. PYRIDIUM [Concomitant]
     Dosage: 200 MG, 3X/DAY AS NEEDED
     Route: 048
     Dates: start: 20111212
  19. ALBUTEROL SULFATE [Concomitant]
     Indication: DYSPNOEA
     Dosage: (2.5 MG/3 ML) 0.083% NEBULIZED SOLN, 4X/DAY AS NEEDED
     Route: 055
     Dates: start: 20111025
  20. ALBUTEROL SULFATE [Concomitant]
     Indication: WHEEZING
  21. TRIAMCINOLONE ACETONIDE [Concomitant]
     Dosage: 0.1% CREAM APPLY , 2X/DAY AS NEEDED
     Dates: start: 20101109
  22. ALBUTEROL [Concomitant]
     Dosage: 90 MCG/ACT INHALER 2 (TWO), Q 4 HOURS ONLY AS NEEDED
     Route: 055
     Dates: start: 20110331

REACTIONS (10)
  - Chronic obstructive pulmonary disease [Unknown]
  - Asthma [Unknown]
  - Dyspnoea [Unknown]
  - Candida infection [Unknown]
  - Cough [Not Recovered/Not Resolved]
  - Back pain [Unknown]
  - Chest pain [Unknown]
  - Stress [Unknown]
  - Fatigue [Unknown]
  - Obesity [Unknown]
